FAERS Safety Report 23181102 (Version 1)
Quarter: 2023Q4

REPORT INFORMATION
  Report Type: Spontaneous
  Country: RO (occurrence: RO)
  Receive Date: 20231114
  Receipt Date: 20231114
  Transmission Date: 20240110
  Serious: Yes (Hospitalization)
  Sender: FDA-Public Use
  Company Number: None

PATIENT
  Age: 32 Year
  Sex: Female
  Weight: 59 kg

DRUGS (1)
  1. MELOXICAM [Suspect]
     Active Substance: MELOXICAM
     Indication: Headache
     Dosage: 1 TABLET/DAY
     Route: 048
     Dates: start: 20231026, end: 20231026

REACTIONS (4)
  - Rash pruritic [Recovered/Resolved]
  - General physical condition abnormal [Recovering/Resolving]
  - Rash erythematous [Recovered/Resolved]
  - Face oedema [Recovering/Resolving]

NARRATIVE: CASE EVENT DATE: 20231026
